FAERS Safety Report 6420890-0 (Version None)
Quarter: 2009Q4

REPORT INFORMATION
  Report Type: 
  Country: None (occurrence: None)
  Receive Date: 20091028
  Receipt Date: 20091013
  Transmission Date: 20100525
  Serious: Yes (Hospitalization)
  Sender: FDA-Public Use
  Company Number: DSU-2009-02204

PATIENT
  Sex: Female
  Weight: 56.6996 kg

DRUGS (6)
  1. BENICAR HCT [Suspect]
     Indication: HYPERTENSION
     Dosage: 40/25 MG (QD), PER ORAL
     Route: 048
     Dates: start: 20030101
  2. NORVASC [Concomitant]
  3. CARTIA (DILTIAZEM HYDROCHLORIDE) (DILTIAZEM HYDROCHLORIDE) [Concomitant]
  4. PROZAC [Concomitant]
  5. LIPITOR [Concomitant]
  6. CLONAZEPAM [Concomitant]

REACTIONS (6)
  - BLOOD PRESSURE INCREASED [None]
  - COELIAC DISEASE [None]
  - COLITIS [None]
  - DEHYDRATION [None]
  - HYPOTENSION [None]
  - OEDEMA PERIPHERAL [None]
